FAERS Safety Report 13141312 (Version 1)
Quarter: 2017Q1

REPORT INFORMATION
  Report Type: Spontaneous
  Country: FR (occurrence: FR)
  Receive Date: 20170123
  Receipt Date: 20170123
  Transmission Date: 20170428
  Serious: Yes (Hospitalization)
  Sender: FDA-Public Use
  Company Number: FR-009507513-1701FRA007964

PATIENT
  Age: 74 Year
  Sex: Female

DRUGS (14)
  1. AERIUS [Suspect]
     Active Substance: DESLORATADINE
     Dosage: 5 MG, QD
     Route: 048
     Dates: end: 20161130
  2. URISPAS [Suspect]
     Active Substance: FLAVOXATE HYDROCHLORIDE
     Dosage: 200 MG, BID
     Route: 048
     Dates: end: 20161130
  3. NORDAZ [Suspect]
     Active Substance: NORDAZEPAM
     Dosage: FORMULATION: DOUBLE SCORED TABLET, 7.5 MG, QD
     Route: 048
     Dates: end: 20161130
  4. ENDOTELON [Suspect]
     Active Substance: HERBALS
     Dosage: STRENGTH: GSTRORESISTANT FILM COATED TABLET, 1 DF, BID
     Route: 048
     Dates: end: 20161130
  5. MUCOMYST [Suspect]
     Active Substance: ACETYLCYSTEINE
     Dosage: 200 MG, BID
     Route: 048
     Dates: end: 20161130
  6. LIPANTHYL [Suspect]
     Active Substance: FENOFIBRATE
     Dosage: 200 MG, QD
     Route: 048
     Dates: end: 20161130
  7. SYMBICORT [Suspect]
     Active Substance: BUDESONIDE\FORMOTEROL FUMARATE DIHYDRATE
     Dosage: STRENGTH: 400 MICROGRAM/12 DOSE
     Route: 048
     Dates: end: 20161130
  8. ROZEX (METRONIDAZOLE) [Suspect]
     Active Substance: METRONIDAZOLE
     Dosage: 1 DF, QD
     Route: 061
     Dates: end: 20161130
  9. TERALITHE [Suspect]
     Active Substance: LITHIUM CARBONATE
     Dosage: 375 MG, UNK
     Route: 048
     Dates: end: 20161130
  10. MODOPAR [Suspect]
     Active Substance: BENSERAZIDE HYDROCHLORIDE\LEVODOPA
     Dosage: STRENGTH: 62.5 (50MG/12.5 MG)1 DF, TID
     Route: 048
     Dates: end: 20161130
  11. RHINOMAXIL [Suspect]
     Active Substance: BECLOMETHASONE DIPROPIONATE
     Dosage: 1 DF, BID
     Route: 055
     Dates: end: 20161130
  12. HALDOL [Suspect]
     Active Substance: HALOPERIDOL
     Dosage: 7 GTT, UNK
     Route: 048
     Dates: end: 20161130
  13. TOPLEXIL (ACETAMINOPHEN (+) GUAIFENESIN (+) OXOMEMAZINE (+) SODIUM BEN [Suspect]
     Active Substance: ACETAMINOPHEN\GUAIFENESIN\OXOMEMAZINE\SODIUM BENZOATE
     Dosage: UNK
     Route: 048
     Dates: end: 20161130
  14. SERETIDE [Suspect]
     Active Substance: FLUTICASONE PROPIONATE\SALMETEROL XINAFOATE
     Dosage: FORMULATION: SUSPENSION FOR INHALATION IN PRESSURISED BOTTLE, STRENGTH: 250/25 MICROGRAM/DOS1 DF, QD
     Route: 055
     Dates: end: 20161130

REACTIONS (2)
  - Metabolic acidosis [Recovered/Resolved]
  - Altered state of consciousness [None]

NARRATIVE: CASE EVENT DATE: 20161130
